FAERS Safety Report 18384936 (Version 1)
Quarter: 2020Q4

REPORT INFORMATION
  Report Type: Other
  Country: BE (occurrence: BE)
  Receive Date: 20201015
  Receipt Date: 20201015
  Transmission Date: 20210114
  Serious: Yes (Other)
  Sender: FDA-Public Use
  Company Number: BE-ROCHE-2693801

PATIENT
  Sex: Female

DRUGS (3)
  1. FULVESTRANT. [Suspect]
     Active Substance: FULVESTRANT
     Indication: BREAST CANCER
     Route: 065
  2. MEN 1611 [Suspect]
     Active Substance: CH-5132799 MESYLATE
     Indication: BREAST CANCER
     Route: 065
  3. TRASTUZUMAB. [Suspect]
     Active Substance: TRASTUZUMAB
     Indication: BREAST CANCER
     Route: 041

REACTIONS (6)
  - Alanine aminotransferase increased [Unknown]
  - Pneumonitis [Unknown]
  - Aspartate aminotransferase increased [Unknown]
  - Mucosal inflammation [Unknown]
  - Decreased appetite [Unknown]
  - Hyperglycaemia [Unknown]
